FAERS Safety Report 5001529-8 (Version None)
Quarter: 2006Q2

REPORT INFORMATION
  Report Type: 
  Country: None (occurrence: None)
  Receive Date: 20060502
  Receipt Date: 20050913
  Transmission Date: 20061013
  Serious: Yes (Hospitalization, Other)
  Sender: FDA-Public Use
  Company Number: 2005130176

PATIENT
  Age: 67 Year
  Sex: Male
  Weight: 102.5129 kg

DRUGS (8)
  1. BEXTRA [Suspect]
     Indication: SCIATICA
  2. NORVASC [Concomitant]
  3. LIPITOR [Concomitant]
  4. PLAVIX [Concomitant]
  5. GLIPIZIDE [Concomitant]
  6. PREVACID [Concomitant]
  7. COZAAR [Concomitant]
  8. COUMADIN [Concomitant]

REACTIONS (3)
  - ATRIAL FIBRILLATION [None]
  - SEPSIS [None]
  - STEVENS-JOHNSON SYNDROME [None]
